FAERS Safety Report 6962512-6 (Version None)
Quarter: 2010Q3

REPORT INFORMATION
  Report Type: 
  Country: None (occurrence: None)
  Receive Date: 20100831
  Receipt Date: 20100820
  Transmission Date: 20110219
  Serious: Yes (Other)
  Sender: FDA-Public Use
  Company Number: IPC201008-000248

PATIENT
  Age: 30 Year
  Sex: Female

DRUGS (2)
  1. FUROSEMIDE [Suspect]
     Dosage: 20 MG, DAILY FOR ALMOST 6.5 YEARS, ORAL
     Route: 048
  2. LISINOPRIL [Suspect]
     Dosage: 10 MG, DAILY FOR 8 MONTHS, ORAL
     Route: 048

REACTIONS (3)
  - HEPATITIS CHRONIC ACTIVE [None]
  - HEPATOCELLULAR INJURY [None]
  - HEPATOTOXICITY [None]
